FAERS Safety Report 7352161-2 (Version None)
Quarter: 2011Q1

REPORT INFORMATION
  Report Type: 
  Country: None (occurrence: None)
  Receive Date: 20110315
  Receipt Date: 20110228
  Transmission Date: 20110831
  Serious: Yes (Hospitalization)
  Sender: FDA-Public Use
  Company Number: US-BAYER-201036184NA

PATIENT
  Sex: Female
  Weight: 63 kg

DRUGS (12)
  1. HYDROCODONE BITARTRATE AND ACETAMINOPHEN [Concomitant]
     Dosage: 5-500
     Dates: start: 20090408
  2. AZITHROMYCIN [Concomitant]
     Dosage: 250 MG, UNK
     Dates: start: 20080606
  3. MULTIVITAMIN PREPARATION + MINERAL SUPPLEMENT [Concomitant]
     Route: 048
  4. UNCODEABLE ^UNCLASSIFIABLE^ [Concomitant]
     Dosage: UNK
     Dates: start: 20080606
  5. YAZ [Suspect]
     Indication: PRODUCT USED FOR UNKNOWN INDICATION
     Dates: start: 20070101, end: 20090601
  6. PROMETHAZINE DM [Concomitant]
     Dosage: UNK
     Dates: start: 20080828
  7. CEFPROZIL [Concomitant]
     Dosage: 500 MG, UNK
     Dates: start: 20080828
  8. PREDNISONE TAB [Concomitant]
     Dosage: 20 MG, UNK
     Dates: start: 20090422
  9. NAPROXIWIEB [Concomitant]
     Route: 048
  10. METRONIDAZOLE [Concomitant]
     Dosage: 500 MG, UNK
     Dates: start: 20090123
  11. OMEPRAZOLE [Concomitant]
     Dosage: 20 MG, UNK
     Route: 048
  12. BENTYL [Concomitant]
     Route: 048

REACTIONS (3)
  - BILIARY DYSKINESIA [None]
  - CHOLECYSTITIS [None]
  - ABDOMINAL PAIN UPPER [None]
